FAERS Safety Report 4930636-0 (Version None)
Quarter: 2006Q1

REPORT INFORMATION
  Report Type: 
  Country: None (occurrence: None)
  Receive Date: 20060302
  Receipt Date: 20060215
  Transmission Date: 20060701
  Serious: Yes (Life-Threatening)
  Sender: FDA-Public Use
  Company Number: 2006AP00767

PATIENT
  Age: 28 Year
  Sex: Female
  Weight: 67 kg

DRUGS (3)
  1. MARCAIN SPINAL HYPERBARIC [Suspect]
     Indication: SPINAL ANAESTHESIA
     Route: 037
  2. AMINOPHYLLINE [Concomitant]
     Indication: ASTHMA
  3. HYDROCORTISONE [Concomitant]
     Indication: ASTHMA

REACTIONS (7)
  - ASTHMA [None]
  - CHEST X-RAY ABNORMAL [None]
  - DRUG EXPOSURE DURING PREGNANCY [None]
  - GLASGOW COMA SCALE ABNORMAL [None]
  - HEART RATE DECREASED [None]
  - HYPERTHERMIA MALIGNANT [None]
  - MUSCLE RIGIDITY [None]
